FAERS Safety Report 24274330 (Version 1)
Quarter: 2024Q3

REPORT INFORMATION
  Report Type: Spontaneous
  Country: NL (occurrence: NL)
  Receive Date: 20240902
  Receipt Date: 20240902
  Transmission Date: 20241016
  Serious: Yes (Death, Hospitalization)
  Sender: AIR PRODUCTS
  Company Number: NL-Air Products and Chemicals-2161088

PATIENT
  Age: 3 Year
  Sex: Male

DRUGS (1)
  1. OXYGEN [Suspect]
     Active Substance: OXYGEN

REACTIONS (10)
  - Dyspnoea [Unknown]
  - Subcutaneous emphysema [Recovering/Resolving]
  - Tachypnoea [Unknown]
  - Chronic graft versus host disease [Fatal]
  - Epstein-Barr virus infection [Recovered/Resolved]
  - Febrile neutropenia [Unknown]
  - Pneumomediastinum [Recovered/Resolved]
  - Mediastinal mass [Recovered/Resolved]
  - Epstein-Barr virus associated lymphoproliferative disorder [Recovering/Resolving]
  - Post transplant lymphoproliferative disorder [Recovering/Resolving]
